FAERS Safety Report 5131966-2 (Version None)
Quarter: 2006Q4

REPORT INFORMATION
  Report Type: 
  Country: None (occurrence: None)
  Receive Date: 20061017
  Receipt Date: 20061002
  Transmission Date: 20070319
  Serious: Yes (Disabling, Other)
  Sender: FDA-Public Use
  Company Number: PAR_0845_2006

PATIENT
  Age: 78 Year
  Sex: Female
  Weight: 90.7194 kg

DRUGS (11)
  1. HYDRALAZINE HYDROCHLORIDE [Suspect]
     Indication: HYPERTENSION
     Dosage: 50 MG TID PO
     Route: 048
  2. HYDRALAZINE HYDROCHLORIDE [Suspect]
     Indication: HYPERTENSION
     Dosage: 50 MG BID PO
     Route: 048
  3. RENAGEL [Concomitant]
  4. CARDIZEM [Concomitant]
  5. DURICEF [Concomitant]
  6. ROCALTROL [Concomitant]
  7. FUROSEMIDE [Concomitant]
  8. METOPROLOL TARTRATE [Concomitant]
  9. ZOCOR [Concomitant]
  10. COZAAR [Concomitant]
  11. TEGRETOL [Concomitant]

REACTIONS (3)
  - ASTHENIA [None]
  - GAIT DISTURBANCE [None]
  - TREMOR [None]
